FAERS Safety Report 23738601 (Version 1)
Quarter: 2024Q2

REPORT INFORMATION
  Report Type: Spontaneous
  Country: GB (occurrence: NO)
  Receive Date: 20240412
  Receipt Date: 20240412
  Transmission Date: 20240716
  Serious: Yes (Hospitalization, Other)
  Sender: FDA-Public Use
  Company Number: NO-CNX THERAPEUTICS-2024CNX000268

PATIENT

DRUGS (3)
  1. LATUDA [Suspect]
     Active Substance: LURASIDONE HYDROCHLORIDE
     Indication: Schizophrenia
     Dosage: 74 MG X1 PER DAY
     Route: 048
     Dates: start: 20240207, end: 20240315
  2. NYCOPLUS MULTI [Concomitant]
     Indication: Product used for unknown indication
     Dosage: CONTINUED USE OF MEDICINAL PRODUCT
     Route: 065
  3. Nycoplus omega-3 basic [Concomitant]
     Indication: Product used for unknown indication
     Dosage: CONTINUED USE OF MEDICINAL PRODUCT
     Route: 065

REACTIONS (5)
  - General physical health deterioration [Recovered/Resolved]
  - Pyrexia [Recovered/Resolved]
  - Oedema peripheral [Recovered/Resolved]
  - Urticaria [Recovered/Resolved]
  - Angioedema [Recovered/Resolved]

NARRATIVE: CASE EVENT DATE: 20240313
